FAERS Safety Report 9219874 (Version 2)
Quarter: 2013Q2

REPORT INFORMATION
  Report Type: Spontaneous
  Country: GB (occurrence: GB)
  Receive Date: 20130409
  Receipt Date: 20130410
  Transmission Date: 20140414
  Serious: Yes (Other)
  Sender: FDA-Public Use
  Company Number: GB-ROCHE-1210543

PATIENT
  Age: 44 Year
  Sex: Male
  Weight: 76 kg

DRUGS (3)
  1. RIBAVIRIN [Suspect]
     Indication: HEPATITIS C
     Route: 065
  2. PEGASYS [Suspect]
     Indication: HEPATITIS C
     Route: 065
  3. INCIVO [Suspect]
     Indication: HEPATITIS C
     Route: 048
     Dates: start: 20121026, end: 20130118

REACTIONS (1)
  - Viral load increased [Unknown]
